FAERS Safety Report 25499645 (Version 1)
Quarter: 2025Q3

REPORT INFORMATION
  Report Type: Report from Study
  Country: KR (occurrence: KR)
  Receive Date: 20250701
  Receipt Date: 20250701
  Transmission Date: 20251020
  Serious: Yes (Hospitalization, Other)
  Sender: TAKEDA
  Company Number: KR-LUNDBECK-DKLU4016250

PATIENT
  Age: 87 Year
  Sex: Male

DRUGS (11)
  1. VORTIOXETINE [Suspect]
     Active Substance: VORTIOXETINE
     Indication: Behaviour disorder
     Dosage: 1 DOSAGE FORM, QD
     Dates: start: 20240603
  2. MEMANTINE HYDROCHLORIDE [Suspect]
     Active Substance: MEMANTINE HYDROCHLORIDE
     Indication: Dementia Alzheimer^s type
     Dosage: 0.5 DOSAGE FORM, BID
     Dates: start: 20240522
  3. AZILECT [Concomitant]
     Active Substance: RASAGILINE MESYLATE
     Indication: Parkinsonism
     Dosage: 1 DOSAGE FORM, QD
     Dates: start: 20210901
  4. Riselton [Concomitant]
     Indication: Product used for unknown indication
     Dosage: 1 DOSAGE FORM, BID
     Dates: start: 20230703
  5. HERBALS [Concomitant]
     Active Substance: HERBALS
     Indication: Gastritis
     Dosage: 1 DOSAGE FORM, TID
     Dates: start: 20210915
  6. FOLIC ACID [Concomitant]
     Active Substance: FOLIC ACID
     Indication: Vitamin supplementation
     Dosage: 1 DOSAGE FORM, QD
     Dates: start: 20210929
  7. ASPIRIN [Concomitant]
     Active Substance: ASPIRIN
     Indication: Arteriosclerosis
     Dosage: 1 DOSAGE FORM, QD
     Dates: start: 20230927
  8. PLAVIX [Concomitant]
     Active Substance: CLOPIDOGREL BISULFATE
     Indication: Peripheral arterial occlusive disease
     Dosage: 1 DOSAGE FORM, QD
     Dates: start: 20230927
  9. OPALMON [Concomitant]
     Active Substance: LIMAPROST
     Indication: Peripheral arterial occlusive disease
     Dosage: 1 DOSAGE FORM, TID
     Dates: start: 20230928
  10. LASIX [Concomitant]
     Active Substance: FUROSEMIDE
     Indication: Peripheral arterial occlusive disease
     Dosage: 0.5 DOSAGE FORM, QD
     Dates: start: 20230927
  11. Prapexole [Concomitant]
     Indication: Parkinsonism
     Dosage: 1 DOSAGE FORM, TID
     Dates: start: 20240522

REACTIONS (3)
  - Femoral neck fracture [Recovering/Resolving]
  - Inappropriate schedule of product administration [Unknown]
  - Product use in unapproved indication [Unknown]

NARRATIVE: CASE EVENT DATE: 20240802
